FAERS Safety Report 24353358 (Version 1)
Quarter: 2024Q3

REPORT INFORMATION
  Report Type: Report from Study
  Country: US (occurrence: US)
  Receive Date: 20240923
  Receipt Date: 20240923
  Transmission Date: 20241017
  Serious: Yes (Hospitalization)
  Sender: ITALFARMACO
  Company Number: US-ITALFARMACO SPA-2161929

PATIENT
  Age: 49 Year
  Sex: Male

DRUGS (6)
  1. TIGLUTIK [Suspect]
     Active Substance: RILUZOLE
     Indication: Amyotrophic lateral sclerosis
     Dates: start: 20240308
  2. DULCOLAX [Concomitant]
  3. VITAMIN B12 [Concomitant]
     Active Substance: CYANOCOBALAMIN
  4. ATIVAN [Concomitant]
     Active Substance: LORAZEPAM
  5. COLACE [Concomitant]
     Active Substance: DOCUSATE SODIUM
  6. GENERLAC [Concomitant]
     Active Substance: LACTULOSE

REACTIONS (4)
  - Hospitalisation [Recovering/Resolving]
  - Intestinal dilatation [Recovering/Resolving]
  - Gastrointestinal tube insertion [Recovering/Resolving]
  - Nephrolithiasis [Recovering/Resolving]

NARRATIVE: CASE EVENT DATE: 20240816
